FAERS Safety Report 20344470 (Version 1)
Quarter: 2022Q1

REPORT INFORMATION
  Report Type: Report from Study
  Country: KR (occurrence: KR)
  Receive Date: 20220118
  Receipt Date: 20220118
  Transmission Date: 20220423
  Serious: Yes (Life-Threatening)
  Sender: FDA-Public Use
  Company Number: KR-TAKEDA-2022TJP006229

PATIENT
  Age: 48 Year
  Sex: Female

DRUGS (9)
  1. NIRAPARIB [Suspect]
     Active Substance: NIRAPARIB
     Indication: Product used for unknown indication
     Dosage: 200 MILLIGRAM, QD
     Route: 048
     Dates: start: 20210602, end: 20210628
  2. NIRAPARIB [Suspect]
     Active Substance: NIRAPARIB
     Dosage: 200 MILLIGRAM, QD
     Route: 048
     Dates: start: 20210701
  3. URSODIOL [Concomitant]
     Active Substance: URSODIOL
     Indication: Liver function test increased
     Dosage: 100 MILLIGRAM, TID
     Route: 048
     Dates: start: 20210602, end: 20210611
  4. GODEX [Concomitant]
     Indication: Liver function test increased
     Dosage: 1 CAP, BID
     Route: 048
     Dates: start: 20210602, end: 20210611
  5. PREBALIN [Concomitant]
     Indication: Peripheral sensory neuropathy
     Dosage: 150 MILLIGRAM, BID
     Route: 048
     Dates: start: 20210209
  6. CYMBALTA [Concomitant]
     Active Substance: DULOXETINE HYDROCHLORIDE
     Indication: Prophylaxis
     Dosage: 30 MILLIGRAM, QD
     Route: 048
     Dates: start: 20210209
  7. LEVOTHYROXINE SODIUM [Concomitant]
     Active Substance: LEVOTHYROXINE SODIUM
     Indication: Hypothyroidism
     Dosage: 50 MICROGRAM, QD
     Route: 048
     Dates: start: 20210531
  8. GRASIN [Concomitant]
     Indication: Neutrophil count decreased
     Dosage: 300 MICROGRAM, QD
     Route: 058
     Dates: start: 20210629, end: 20210629
  9. ENTELON [Concomitant]
     Indication: Oedema peripheral
     Dosage: 150 MILLIGRAM, BID
     Route: 048
     Dates: start: 20210609, end: 20210622

REACTIONS (1)
  - Anaemia [Recovered/Resolved]

NARRATIVE: CASE EVENT DATE: 20211005
